FAERS Safety Report 9123100 (Version 1)
Quarter: 2013Q1

REPORT INFORMATION
  Report Type: Spontaneous
  Country: US (occurrence: None)
  Receive Date: 20130225
  Receipt Date: 20130225
  Transmission Date: 20140127
  Serious: No
  Sender: FDA-Public Use
  Company Number: None

PATIENT
  Age: 17 Year
  Sex: Female
  Weight: 52.6 kg

DRUGS (1)
  1. LEVONORGESTREL IUD 52 MG BAYER [Suspect]
     Indication: CONTRACEPTION
     Dosage: 52 MG  X1  INTRA-UTERINE
     Route: 015
     Dates: start: 20130222, end: 20130222

REACTIONS (1)
  - Complication of device insertion [None]
